FAERS Safety Report 11248255 (Version 1)
Quarter: 2015Q3

REPORT INFORMATION
  Report Type: Spontaneous
  Country: US (occurrence: None)
  Receive Date: 20150707
  Receipt Date: 20150707
  Transmission Date: 20151125
  Serious: Yes (Hospitalization)
  Sender: FDA-Public Use
  Company Number: None

PATIENT
  Age: 62 Year
  Sex: Female
  Weight: 108 kg

DRUGS (1)
  1. HARVONI [Suspect]
     Active Substance: LEDIPASVIR\SOFOSBUVIR
     Indication: CHRONIC HEPATITIS C
     Route: 048
     Dates: start: 20141229, end: 20150617

REACTIONS (11)
  - Chest discomfort [None]
  - Fluid overload [None]
  - Headache [None]
  - Ammonia increased [None]
  - Infrequent bowel movements [None]
  - Back pain [None]
  - Acute kidney injury [None]
  - Encephalopathy [None]
  - Treatment noncompliance [None]
  - Mental status changes [None]
  - Dyspnoea [None]

NARRATIVE: CASE EVENT DATE: 20150525
